FAERS Safety Report 6148469-9 (Version None)
Quarter: 2009Q2

REPORT INFORMATION
  Report Type: 
  Country: None (occurrence: None)
  Receive Date: 20090408
  Receipt Date: 20090407
  Transmission Date: 20091009
  Serious: Yes (Hospitalization)
  Sender: FDA-Public Use
  Company Number: US-TEVA-190744USA

PATIENT
  Sex: Female

DRUGS (1)
  1. COPAXONE [Suspect]
     Indication: MULTIPLE SCLEROSIS
     Route: 058
     Dates: start: 20060901, end: 20061101

REACTIONS (6)
  - ANOREXIA [None]
  - DEHYDRATION [None]
  - HEADACHE [None]
  - PAIN [None]
  - VOMITING [None]
  - WEIGHT DECREASED [None]
